FAERS Safety Report 5006119-9 (Version None)
Quarter: 2006Q1

REPORT INFORMATION
  Report Type: 
  Country: None (occurrence: None)
  Receive Date: 20060328
  Receipt Date: 20051212
  Transmission Date: 20060701
  Serious: No
  Sender: FDA-Public Use
  Company Number: 05P-163-0319250-00

PATIENT
  Age: 54 Year
  Sex: Male

DRUGS (1)
  1. HUMIRA [Suspect]
     Indication: RHEUMATOID ARTHRITIS
     Dosage: 40 MG, 1 IN 1 WK, SUBCUTANEOUS
     Route: 058
     Dates: start: 20040101, end: 20051202

REACTIONS (1)
  - LUNG NEOPLASM MALIGNANT [None]
